FAERS Safety Report 7096711-2 (Version None)
Quarter: 2010Q4

REPORT INFORMATION
  Report Type: 
  Country: None (occurrence: None)
  Receive Date: 20101103
  Receipt Date: 20101026
  Transmission Date: 20110411
  Serious: Yes (Other)
  Sender: FDA-Public Use
  Company Number: 2010US004407

PATIENT
  Sex: Female

DRUGS (2)
  1. AMBISOME [Suspect]
     Indication: CANDIDA SEPSIS
     Dosage: 7 MG/KG, UID/QD
     Dates: start: 20080101, end: 20080101
  2. CASPOFUNGIN (CASPOFUNGIN) [Suspect]
     Indication: CANDIDA SEPSIS
     Dosage: 2 MG/KG, UID/QD
     Dates: start: 20080101, end: 20080101

REACTIONS (3)
  - CENTRAL NERVOUS SYSTEM INFECTION [None]
  - DEAFNESS BILATERAL [None]
  - DRUG RESISTANCE [None]
